FAERS Safety Report 24178823 (Version 1)
Quarter: 2024Q3

REPORT INFORMATION
  Report Type: Spontaneous
  Country: CN (occurrence: CN)
  Receive Date: 20240806
  Receipt Date: 20240806
  Transmission Date: 20241017
  Serious: Yes (Other)
  Sender: PFIZER
  Company Number: CN-PFIZER INC-PV202400100699

PATIENT
  Age: 35 Year
  Sex: Female
  Weight: 45.5 kg

DRUGS (2)
  1. CYTARABINE [Suspect]
     Active Substance: CYTARABINE
     Indication: Chemotherapy
     Dosage: 0.1 G, 1X/DAY
     Route: 041
     Dates: start: 20240718, end: 20240722
  2. SODIUM CHLORIDE [Concomitant]
     Active Substance: SODIUM CHLORIDE
     Indication: Vehicle solution use
     Dosage: 250 ML, 1X/DAY
     Route: 041
     Dates: start: 20240718, end: 20240722

REACTIONS (6)
  - Chest discomfort [Recovering/Resolving]
  - Quadriparesis [Recovering/Resolving]
  - Muscle twitching [Recovering/Resolving]
  - Hypoaesthesia [Recovering/Resolving]
  - Quadriplegia [Recovering/Resolving]
  - Malaise [Recovering/Resolving]

NARRATIVE: CASE EVENT DATE: 20240718
